FAERS Safety Report 4431845-X (Version None)
Quarter: 2004Q3

REPORT INFORMATION
  Report Type: 
  Country: None (occurrence: None)
  Receive Date: 20040819
  Receipt Date: 20040806
  Transmission Date: 20050211
  Serious: No
  Sender: FDA-Public Use
  Company Number: A-CH2004-06333

PATIENT
  Age: 54 Year
  Sex: Male

DRUGS (10)
  1. TRACLEER [Suspect]
     Indication: PULMONARY HYPERTENSION
     Dosage: 62.5 MG, BID, ORAL
     Route: 048
     Dates: start: 20040430
  2. UNAT (TORASEMIDE) [Concomitant]
  3. DYTIDE (BENZTHIAZIDE, TRIAMTERENE) [Concomitant]
  4. MARCUMAR [Concomitant]
  5. CLEXANE (HEPARIN-GRACTION, SODIUM SALT) [Concomitant]
  6. SORTIS ^GOEDECKE^ (ATORVASTATIN CALCIUM) [Concomitant]
  7. TRAMADOL HCL [Concomitant]
  8. RAMIPRIL [Concomitant]
  9. ALLOPURINOL [Concomitant]
  10. METFORMIN HCL [Concomitant]

REACTIONS (2)
  - ANXIETY [None]
  - PANIC ATTACK [None]
